FAERS Safety Report 6838972-8 (Version None)
Quarter: 2010Q3

REPORT INFORMATION
  Report Type: 
  Country: None (occurrence: None)
  Receive Date: 20100713
  Receipt Date: 20071129
  Transmission Date: 20110219
  Serious: Yes (Other)
  Sender: FDA-Public Use
  Company Number: US-PFIZER INC-2007040073

PATIENT
  Sex: Male
  Weight: 117.9 kg

DRUGS (2)
  1. CHANTIX [Suspect]
     Indication: SMOKING CESSATION THERAPY
     Route: 048
     Dates: start: 20061101, end: 20070510
  2. CELEXA [Concomitant]
     Indication: DEPRESSION

REACTIONS (2)
  - ALCOHOLIC [None]
  - SUICIDAL IDEATION [None]
